FAERS Safety Report 5101990-4 (Version None)
Quarter: 2006Q3

REPORT INFORMATION
  Report Type: 
  Country: None (occurrence: None)
  Receive Date: 20060907
  Receipt Date: 20060829
  Transmission Date: 20061208
  Serious: Yes (Other)
  Sender: FDA-Public Use
  Company Number: 2006077890

PATIENT
  Age: 70 Year
  Sex: Female
  Weight: 68.0396 kg

DRUGS (5)
  1. NORVASC [Suspect]
     Indication: CARDIAC FAILURE CHRONIC
     Dosage: 10 MG (10 MG, 1 IN 1 D)
     Dates: end: 20060618
  2. NORVASC [Suspect]
     Indication: HYPERTENSION
     Dosage: 10 MG (10 MG, 1 IN 1 D)
     Dates: end: 20060618
  3. IBUPROFEN [Concomitant]
  4. LASIX [Concomitant]
  5. CALCIUM CHLORIDE (CALCIUM CHLORIDE ANHYDROUS) [Concomitant]

REACTIONS (1)
  - DRUG INEFFECTIVE [None]
